FAERS Safety Report 8647764 (Version 2)
Quarter: 2012Q4

REPORT INFORMATION
  Report Type: 
  Country: US (occurrence: US)
  Receive Date: 20120703
  Receipt Date: 20121011
  Transmission Date: 20130627
  Serious: No
  Sender: FDA-Public Use
  Company Number: PHEH2012US012894

PATIENT
  Sex: Female

DRUGS (11)
  1. EXFORGE [Suspect]
     Indication: HYPERTENSION
     Dosage: (320/10 mg), once a day
     Route: 048
  2. EXFORGE [Suspect]
     Dosage: (320/5 mg), UNK
  3. ADVAIR [Concomitant]
     Indication: ASTHMA
     Dosage: (250/50 mg), twice a day
     Route: 048
  4. CLONIDINE [Concomitant]
     Indication: HYPERTENSION
     Dosage: 0.2 mg, twice a day
     Route: 048
  5. LIPITOR [Concomitant]
     Indication: BLOOD CHOLESTEROL ABNORMAL
     Dosage: 40 mg, once a day
     Route: 048
  6. LASIX [Concomitant]
     Indication: DIURETIC THERAPY
     Dosage: 40 mg, once a day
     Route: 048
  7. PLAVIX [Concomitant]
     Indication: ANTICOAGULANT THERAPY
     Dosage: 75 mg, once day
     Route: 048
  8. METOPROLOL [Concomitant]
     Indication: HYPERTENSION
     Dosage: 50 mg, once a day
     Route: 048
  9. METFORMIN [Concomitant]
     Indication: DIABETES MELLITUS
     Dosage: 500 mg, once a day
     Route: 048
  10. DICLOFENAC [Concomitant]
     Indication: CARPAL TUNNEL SYNDROME
     Dosage: 75 mg, twice a day
     Route: 048
  11. SINGULAIR [Concomitant]
     Indication: ASTHMA
     Dosage: 10 mg, once a day
     Route: 048

REACTIONS (2)
  - Obstruction [Unknown]
  - Blood pressure inadequately controlled [Unknown]
